FAERS Safety Report 20808122 (Version 1)
Quarter: 2022Q2

REPORT INFORMATION
  Report Type: Spontaneous
  Country: US (occurrence: None)
  Receive Date: 20220509
  Receipt Date: 20220509
  Transmission Date: 20220721
  Serious: Yes (Hospitalization)
  Sender: FDA-Public Use
  Company Number: None

PATIENT
  Age: 61 Year
  Sex: Female
  Weight: 57.6 kg

DRUGS (1)
  1. BREYANZI [Suspect]
     Active Substance: LISOCABTAGENE MARALEUCEL
     Indication: Diffuse large B-cell lymphoma
     Route: 042
     Dates: start: 20220420, end: 20220420

REACTIONS (8)
  - Pyrexia [None]
  - Chills [None]
  - Hypotension [None]
  - Neurotoxicity [None]
  - Disturbance in attention [None]
  - Dysarthria [None]
  - Electroencephalogram abnormal [None]
  - Confusional state [None]

NARRATIVE: CASE EVENT DATE: 20220422
